FAERS Safety Report 13426667 (Version 11)
Quarter: 2017Q3

REPORT INFORMATION
  Report Type: Report from Study
  Country: CO (occurrence: CO)
  Receive Date: 20170411
  Receipt Date: 20170807
  Transmission Date: 20171127
  Serious: Yes (Death, Hospitalization, Other)
  Sender: FDA-Public Use
  Company Number: CO-AMGEN-COLSL2017038721

PATIENT
  Age: 62 Year
  Sex: Female

DRUGS (7)
  1. NPLATE [Suspect]
     Active Substance: ROMIPLOSTIM
     Dosage: 250 MCG, QWK
     Route: 058
  2. NPLATE [Suspect]
     Active Substance: ROMIPLOSTIM
     Indication: IMMUNE THROMBOCYTOPENIC PURPURA
     Dosage: 120 MCG, QWK
     Route: 058
     Dates: start: 20150130
  3. NPLATE [Suspect]
     Active Substance: ROMIPLOSTIM
     Dosage: 200 MCG, QWK
     Route: 058
  4. NPLATE [Suspect]
     Active Substance: ROMIPLOSTIM
     Dosage: 100 MCG, QWK
     Route: 058
  5. NPLATE [Suspect]
     Active Substance: ROMIPLOSTIM
     Dosage: 165 MCG, QWK
     Route: 058
     Dates: start: 20150131
  6. NPLATE [Suspect]
     Active Substance: ROMIPLOSTIM
     Dosage: 160 MUG, UNK
     Route: 058
     Dates: end: 20170719
  7. NPLATE [Suspect]
     Active Substance: ROMIPLOSTIM
     Dosage: 100 MCG, 2 TIMES/WK
     Route: 058
     Dates: start: 20160219

REACTIONS (15)
  - Phlebitis [Not Recovered/Not Resolved]
  - Epistaxis [Recovered/Resolved]
  - Oedema peripheral [Not Recovered/Not Resolved]
  - Headache [Recovered/Resolved]
  - Abscess [Not Recovered/Not Resolved]
  - Systemic lupus erythematosus [Not Recovered/Not Resolved]
  - Chest pain [Not Recovered/Not Resolved]
  - Mouth haemorrhage [Recovered/Resolved]
  - Haemoglobin decreased [Fatal]
  - Thrombocytopenia [Fatal]
  - Intentional product misuse [Not Recovered/Not Resolved]
  - Off label use [Not Recovered/Not Resolved]
  - Gingival bleeding [Not Recovered/Not Resolved]
  - Cardiomegaly [Not Recovered/Not Resolved]
  - Petechiae [Recovering/Resolving]

NARRATIVE: CASE EVENT DATE: 20160219
